FAERS Safety Report 24157684 (Version 1)
Quarter: 2024Q3

REPORT INFORMATION
  Report Type: Spontaneous
  Country: FR (occurrence: FR)
  Receive Date: 20240731
  Receipt Date: 20240731
  Transmission Date: 20241017
  Serious: Yes (Congenital Anomaly)
  Sender: MYLAN
  Company Number: None

PATIENT
  Age: 33 Week
  Sex: Female
  Weight: 2.7 kg

DRUGS (11)
  1. CREON [Suspect]
     Active Substance: PANCRELIPASE AMYLASE\PANCRELIPASE LIPASE\PANCRELIPASE PROTEASE
     Indication: Cystic fibrosis
     Dosage: 15 DOSAGE FORM, QD
     Route: 064
     Dates: start: 20231029
  2. ESOMEPRAZOLE [Suspect]
     Active Substance: ESOMEPRAZOLE
     Indication: Cystic fibrosis
     Dosage: 20 MILLIGRAM, QD
     Route: 064
     Dates: start: 20231029
  3. ELEXACAFTOR\IVACAFTOR\TEZACAFTOR [Suspect]
     Active Substance: ELEXACAFTOR\IVACAFTOR\TEZACAFTOR
     Indication: Cystic fibrosis
     Dosage: 2 DOSAGE FORM, QD
     Route: 064
     Dates: start: 20231029
  4. COLISTIMETHATE SODIUM [Suspect]
     Active Substance: COLISTIMETHATE SODIUM
     Indication: Cystic fibrosis
     Dosage: 2 MEGA-INTERNATIONAL UNIT, BID
     Route: 064
     Dates: start: 20231029
  5. SINGULAIR [Suspect]
     Active Substance: MONTELUKAST SODIUM
     Indication: Cystic fibrosis
     Dosage: UNK
     Route: 064
     Dates: start: 20240516
  6. INNOVAIR [Suspect]
     Active Substance: BECLOMETHASONE DIPROPIONATE\FORMOTEROL
     Indication: Cystic fibrosis
     Dosage: 2 DOSAGE FORM, BID
     Route: 064
     Dates: start: 20231029
  7. ALBUTEROL [Suspect]
     Active Substance: ALBUTEROL
     Indication: Cystic fibrosis
     Dosage: 1 DOSAGE FORM, PRN
     Route: 064
     Dates: start: 20231029, end: 20240510
  8. CETIRIZINE HYDROCHLORIDE [Suspect]
     Active Substance: CETIRIZINE HYDROCHLORIDE
     Indication: Cystic fibrosis
     Dosage: 20 MILLIGRAM, QD
     Route: 064
     Dates: start: 20231029
  9. SPIRIVA RESPIMAT [Suspect]
     Active Substance: TIOTROPIUM BROMIDE
     Indication: Cystic fibrosis
     Dosage: 2 DOSAGE FORM, QD
     Route: 064
     Dates: start: 20231029
  10. KALYDECO [Suspect]
     Active Substance: IVACAFTOR
     Indication: Cystic fibrosis
     Dosage: 1 DOSAGE FORM, QD
     Route: 064
     Dates: start: 20231029
  11. PANCRELIPASE [Suspect]
     Active Substance: PANCRELIPASE
     Indication: Cystic fibrosis
     Dosage: 3 DOSAGE FORM, Q8H
     Route: 064
     Dates: start: 20231029

REACTIONS (3)
  - Amniotic fluid index increased [Not Recovered/Not Resolved]
  - Foetal macrosomia [Not Recovered/Not Resolved]
  - Foetal exposure during pregnancy [Not Recovered/Not Resolved]

NARRATIVE: CASE EVENT DATE: 20240606
